FAERS Safety Report 20160449 (Version 3)
Quarter: 2021Q4

REPORT INFORMATION
  Report Type: Spontaneous
  Country: IT (occurrence: IT)
  Receive Date: 20211208
  Receipt Date: 20211231
  Transmission Date: 20220304
  Serious: Yes (Other)
  Sender: FDA-Public Use
  Company Number: IT-BIOGEN-2021BI01075161

PATIENT
  Age: 50 Year
  Sex: Female
  Weight: 60 kg

DRUGS (9)
  1. TECFIDERA [Suspect]
     Active Substance: DIMETHYL FUMARATE
     Indication: Relapsing-remitting multiple sclerosis
     Route: 048
     Dates: start: 20180201, end: 20211122
  2. GABAPENTIN [Concomitant]
     Active Substance: GABAPENTIN
     Indication: Fibromyalgia
     Route: 065
  3. BUPRENORPHINE [Concomitant]
     Active Substance: BUPRENORPHINE
     Indication: Fibromyalgia
     Route: 065
  4. MIRABEGRON [Concomitant]
     Active Substance: MIRABEGRON
     Indication: Fibromyalgia
     Route: 065
  5. fentanyl zentiva [Concomitant]
     Indication: Product used for unknown indication
     Route: 065
  6. LASIX [Concomitant]
     Active Substance: FUROSEMIDE
     Indication: Product used for unknown indication
     Route: 065
  7. HYDROCHLOROTHIAZIDE\VALSARTAN [Concomitant]
     Active Substance: HYDROCHLOROTHIAZIDE\VALSARTAN
     Indication: Product used for unknown indication
     Dosage: 320 MG/25 MG
     Route: 065
  8. BETAMETHASONE SODIUM PHOSPHATE [Concomitant]
     Active Substance: BETAMETHASONE SODIUM PHOSPHATE
     Indication: Product used for unknown indication
     Dosage: 4 MG/2 ML
     Route: 065
  9. ACETAMINOPHEN\OXYCODONE HYDROCHLORIDE [Concomitant]
     Active Substance: ACETAMINOPHEN\OXYCODONE HYDROCHLORIDE
     Indication: Product used for unknown indication
     Dosage: 5MG+325 MG
     Route: 065

REACTIONS (2)
  - Invasive ductal breast carcinoma [Unknown]
  - Breast cancer [Unknown]

NARRATIVE: CASE EVENT DATE: 20210826
